FAERS Safety Report 23596872 (Version 1)
Quarter: 2024Q1

REPORT INFORMATION
  Report Type: Spontaneous
  Country: US (occurrence: None)
  Receive Date: 20240305
  Receipt Date: 20240305
  Transmission Date: 20240410
  Serious: Yes (Hospitalization)
  Sender: FDA-Public Use
  Company Number: None

PATIENT
  Age: 50 Year
  Sex: Male
  Weight: 129.3 kg

DRUGS (1)
  1. AVELUMAB [Suspect]
     Active Substance: AVELUMAB
     Dates: end: 20240206

REACTIONS (9)
  - Diarrhoea [None]
  - Escherichia infection [None]
  - Drug ineffective [None]
  - Therapy interrupted [None]
  - Asthenia [None]
  - Fatigue [None]
  - Fatigue [None]
  - Spinal fracture [None]
  - Culture stool positive [None]

NARRATIVE: CASE EVENT DATE: 20240223
